FAERS Safety Report 9831082 (Version 1)
Quarter: 2014Q1

REPORT INFORMATION
  Report Type: Report from Study
  Country: US (occurrence: US)
  Receive Date: 20140120
  Receipt Date: 20140120
  Transmission Date: 20141002
  Serious: Yes (Other)
  Sender: FDA-Public Use
  Company Number: US-ROCHE-1332937

PATIENT
  Age: 8 Year
  Sex: Male

DRUGS (1)
  1. SOMATROPIN [Suspect]
     Indication: GROWTH HORMONE DEFICIENCY
     Route: 058

REACTIONS (4)
  - Initial insomnia [Unknown]
  - Arthralgia [Unknown]
  - Dizziness [Unknown]
  - Energy increased [Unknown]
